FAERS Safety Report 5406825-8 (Version None)
Quarter: 2007Q3

REPORT INFORMATION
  Report Type: 
  Country: None (occurrence: None)
  Receive Date: 20070807
  Receipt Date: 20070730
  Transmission Date: 20080115
  Serious: Yes (Hospitalization)
  Sender: FDA-Public Use
  Company Number: US-ELI_LILLY_AND_COMPANY-US200602001678

PATIENT
  Age: 77 Year
  Sex: Female

DRUGS (11)
  1. ASACOL [Concomitant]
     Indication: IRRITABLE BOWEL SYNDROME
     Dosage: 400 MG, 3/D
  2. AVAPRO [Concomitant]
     Indication: HYPERTENSION
     Dosage: 150 MG, DAILY (1/D)
  3. ASPIRIN [Concomitant]
     Dosage: 81 MG, DAILY (1/D)
  4. PROTONIX [Concomitant]
     Indication: HIATUS HERNIA
  5. OSCAL 500-D [Concomitant]
  6. VITAMIN D [Concomitant]
  7. PRAVACHOL [Concomitant]
     Indication: BLOOD CHOLESTEROL INCREASED
  8. VYTORIN [Concomitant]
     Indication: BLOOD CHOLESTEROL INCREASED
     Dosage: 10/30
     Dates: end: 20070101
  9. VYTORIN [Concomitant]
     Dosage: 10/30
     Dates: start: 20070101
  10. FORTEO [Suspect]
     Indication: OSTEOPOROSIS
     Dosage: 20 UG, EACH EVENING
     Dates: start: 20070603
  11. FORTEO [Suspect]
     Dosage: 20 UG, EACH EVENING
     Dates: start: 20051001, end: 20070529

REACTIONS (9)
  - ARTHRALGIA [None]
  - DIVERTICULITIS [None]
  - INJECTION SITE PAIN [None]
  - LIMB DISCOMFORT [None]
  - MUSCLE SPASMS [None]
  - PAIN [None]
  - THYROID NEOPLASM [None]
  - URINARY INCONTINENCE [None]
  - WEIGHT INCREASED [None]
